FAERS Safety Report 6664802-3 (Version None)
Quarter: 2010Q1

REPORT INFORMATION
  Report Type: 
  Country: None (occurrence: None)
  Receive Date: 20100330
  Receipt Date: 20100315
  Transmission Date: 20100710
  Serious: Yes (Hospitalization)
  Sender: FDA-Public Use
  Company Number: KV201000084

PATIENT
  Age: 53 Year
  Sex: Female

DRUGS (12)
  1. NITROGLYCERIN [Suspect]
     Indication: CHEST PAIN
     Dosage: 0.5 MG, PRN, ORAL
     Route: 048
     Dates: start: 20030801, end: 20100101
  2. METOPROLOL SUCCINATE [Concomitant]
  3. SIMVASTATIN [Concomitant]
  4. FLUOXETINE [Concomitant]
  5. TRAMADOL HCL [Concomitant]
  6. GABAPENTIN [Concomitant]
  7. QUETIAPINE (QUETIAPINE) [Concomitant]
  8. ASPIRIN [Concomitant]
  9. LISINOPRIL [Concomitant]
  10. CETIRIZINE HCL [Concomitant]
  11. ZOLPIDEM [Concomitant]
  12. INSULIN (INSULIN) [Concomitant]

REACTIONS (14)
  - ABDOMINAL PAIN [None]
  - ARRHYTHMIA [None]
  - BLOOD DISORDER [None]
  - CHEST PAIN [None]
  - EPISTAXIS [None]
  - FAECALOMA [None]
  - GASTROINTESTINAL HAEMORRHAGE [None]
  - HAEMATOCHEZIA [None]
  - HEADACHE [None]
  - HEART RATE ABNORMAL [None]
  - HEART RATE INCREASED [None]
  - LOSS OF CONSCIOUSNESS [None]
  - PANIC REACTION [None]
  - VISUAL IMPAIRMENT [None]
